FAERS Safety Report 10700268 (Version 1)
Quarter: 2015Q1

REPORT INFORMATION
  Report Type: Spontaneous
  Country: US (occurrence: None)
  Receive Date: 20150107
  Receipt Date: 20150107
  Transmission Date: 20150721
  Serious: Yes (Congenital Anomaly)
  Sender: FDA-Public Use
  Company Number: 2694069

PATIENT
  Sex: 0
  Weight: 1.89 kg

DRUGS (2)
  1. (CARBOPLATIN) [Suspect]
     Active Substance: CARBOPLATIN
     Route: 064
  2. (PACLITAXEL) [Suspect]
     Active Substance: PACLITAXEL
     Route: 064

REACTIONS (2)
  - Foetal growth restriction [None]
  - Maternal drugs affecting foetus [None]
